FAERS Safety Report 21842023 (Version 1)
Quarter: 2023Q1

REPORT INFORMATION
  Report Type: Spontaneous
  Country: US (occurrence: US)
  Receive Date: 20230110
  Receipt Date: 20230110
  Transmission Date: 20230417
  Serious: Yes (Hospitalization, Other)
  Sender: FDA-Public Use
  Company Number: US-MYLANLABS-2022M1140944

PATIENT
  Sex: Male

DRUGS (8)
  1. LOPERAMIDE [Suspect]
     Active Substance: LOPERAMIDE
     Indication: Drug dependence
     Dosage: 200 MILLIGRAM, QD; SELF MEDICATED
     Route: 065
  2. LOPERAMIDE [Suspect]
     Active Substance: LOPERAMIDE
     Dosage: 768 MILLIGRAM, QD; SELF MEDICATED
     Route: 065
  3. HEROIN [Concomitant]
     Active Substance: DIAMORPHINE
     Indication: Back pain
     Dosage: UNK
     Route: 065
  4. VITAMIN C [Concomitant]
     Active Substance: ASCORBIC ACID
     Indication: Prophylaxis
     Dosage: 12,000-14,000 MG, QD
     Route: 065
  5. MAGNESIUM CITRATE [Concomitant]
     Active Substance: MAGNESIUM CITRATE
     Indication: Prophylaxis
     Dosage: 1200 MILLIGRAM, QD
     Route: 065
  6. FISH OIL [Concomitant]
     Active Substance: FISH OIL
     Indication: Prophylaxis
     Dosage: UNK; OIL
     Route: 065
  7. VITAMINS [Concomitant]
     Active Substance: VITAMINS
     Indication: Prophylaxis
     Dosage: UNK UNK, QD; PILLS
     Route: 065
  8. ZINC [Concomitant]
     Active Substance: ZINC
     Indication: Prophylaxis
     Dosage: UNK
     Route: 065

REACTIONS (10)
  - Coronary artery disease [Unknown]
  - Drug withdrawal syndrome [Unknown]
  - Fall [Unknown]
  - Intentional product misuse [Unknown]
  - Overdose [Unknown]
  - Toxicity to various agents [Unknown]
  - Long QT syndrome [Unknown]
  - Syncope [Unknown]
  - Dizziness [Unknown]
  - Loss of consciousness [Unknown]
